FAERS Safety Report 5522310-7 (Version None)
Quarter: 2007Q4

REPORT INFORMATION
  Report Type: 
  Country: None (occurrence: None)
  Receive Date: 20071120
  Receipt Date: 20071109
  Transmission Date: 20080405
  Serious: Yes (Hospitalization, Disabling)
  Sender: FDA-Public Use
  Company Number: BE-ASTRAZENECA-2007AC02145

PATIENT
  Age: 73 Year
  Sex: Female

DRUGS (1)
  1. ARIMIDEX [Suspect]
     Indication: BREAST CANCER
     Route: 048
     Dates: start: 20071027

REACTIONS (4)
  - DIZZINESS [None]
  - HEAD DISCOMFORT [None]
  - HEADACHE [None]
  - NAUSEA [None]
